FAERS Safety Report 8386507-3 (Version None)
Quarter: 2012Q2

REPORT INFORMATION
  Report Type: 
  Country: None (occurrence: None)
  Receive Date: 20120525
  Receipt Date: 20120521
  Transmission Date: 20120825
  Serious: Yes (Hospitalization)
  Sender: FDA-Public Use
  Company Number: FR-SANOFI-AVENTIS-2012SA035644

PATIENT
  Age: 53 Year
  Sex: Male

DRUGS (11)
  1. ATORVASTATIN [Concomitant]
     Route: 048
     Dates: start: 20110101
  2. LASIX [Suspect]
     Route: 065
     Dates: start: 20110101
  3. POTASSIUM CHLORIDE [Concomitant]
     Route: 048
     Dates: start: 20110101
  4. PENTOXIFYLLINE [Concomitant]
     Route: 048
     Dates: start: 20110101
  5. ACETAMINOPHEN [Concomitant]
     Route: 048
     Dates: start: 20120216
  6. CORDARONE [Suspect]
     Route: 048
     Dates: start: 20110101
  7. PANOS [Concomitant]
     Route: 048
     Dates: start: 20120216
  8. CEFPODOXIME PROXETIL [Concomitant]
     Route: 048
     Dates: start: 20120216
  9. BISOPROLOL FUMARATE [Suspect]
     Route: 048
     Dates: start: 20110101
  10. PHOLCODINE [Concomitant]
     Dates: start: 20120216
  11. PERINDOPRIL ERBUMINE [Concomitant]
     Route: 048
     Dates: start: 20110101

REACTIONS (2)
  - CONDUCTION DISORDER [None]
  - SYNCOPE [None]
